FAERS Safety Report 11413710 (Version 1)
Quarter: 2015Q3

REPORT INFORMATION
  Report Type: Spontaneous
  Country: PT (occurrence: PT)
  Receive Date: 20150824
  Receipt Date: 20150824
  Transmission Date: 20151125
  Serious: Yes (Disabling, Other)
  Sender: FDA-Public Use
  Company Number: PT-PFIZER INC-2015273429

PATIENT
  Sex: Male

DRUGS (3)
  1. ZOLOFT [Suspect]
     Active Substance: SERTRALINE HYDROCHLORIDE
     Dosage: 150 MG, DAILY
     Dates: start: 200209, end: 201305
  2. ZOLOFT [Suspect]
     Active Substance: SERTRALINE HYDROCHLORIDE
     Indication: DEPRESSION
     Dosage: 50 MG, DAILY
     Dates: start: 200209, end: 201305
  3. ZOLOFT [Suspect]
     Active Substance: SERTRALINE HYDROCHLORIDE
     Dosage: 100 MG, DAILY
     Dates: start: 201305, end: 201305

REACTIONS (12)
  - Cerebral disorder [Not Recovered/Not Resolved]
  - Dementia [Not Recovered/Not Resolved]
  - Speech disorder [Not Recovered/Not Resolved]
  - Nervousness [Unknown]
  - Suicide attempt [Unknown]
  - Dyskinesia [Unknown]
  - Hypersomnia [Unknown]
  - Panic attack [Unknown]
  - Balance disorder [Not Recovered/Not Resolved]
  - Body mass index increased [Unknown]
  - Amnesia [Not Recovered/Not Resolved]
  - Suicidal ideation [Unknown]

NARRATIVE: CASE EVENT DATE: 201305
